FAERS Safety Report 5819376-3 (Version None)
Quarter: 2008Q3

REPORT INFORMATION
  Report Type: 
  Country: None (occurrence: None)
  Receive Date: 20080723
  Receipt Date: 20080714
  Transmission Date: 20090109
  Serious: Yes (Disabling)
  Sender: FDA-Public Use
  Company Number: JP-ASTRAZENECA-2008AP05443

PATIENT
  Age: 50 Year

DRUGS (2)
  1. CRESTOR [Suspect]
     Route: 048
     Dates: start: 20080301, end: 20080701
  2. OMEPRAL [Concomitant]
     Route: 048
     Dates: start: 20080301, end: 20080701

REACTIONS (1)
  - LIVER DISORDER [None]
